FAERS Safety Report 10233961 (Version 2)
Quarter: 2014Q2

REPORT INFORMATION
  Report Type: Spontaneous
  Country: PL (occurrence: PL)
  Receive Date: 20140612
  Receipt Date: 20140618
  Transmission Date: 20141212
  Serious: Yes (Death)
  Sender: FDA-Public Use
  Company Number: PL-ABBVIE-14K-129-1247038-00

PATIENT
  Age: 13 Year
  Sex: Female

DRUGS (3)
  1. SEVORANE [Suspect]
     Indication: ANAESTHESIA
  2. ULTIVA [Concomitant]
     Indication: ANAESTHESIA
  3. DIPRIVAN [Concomitant]
     Indication: ANAESTHESIA

REACTIONS (1)
  - Hyperthermia malignant [Fatal]
